FAERS Safety Report 8155729-9 (Version None)
Quarter: 2012Q1

REPORT INFORMATION
  Report Type: 
  Country: None (occurrence: None)
  Receive Date: 20120215
  Receipt Date: 20120130
  Transmission Date: 20120608
  Serious: Yes (Hospitalization)
  Sender: FDA-Public Use
  Company Number: 023836

PATIENT
  Age: 95 Year
  Sex: Male

DRUGS (1)
  1. MACUGEN [Suspect]
     Indication: AGE-RELATED MACULAR DEGENERATION
     Dosage: INTRAVENOUS
     Route: 042
     Dates: start: 20110101

REACTIONS (2)
  - TRANSIENT ISCHAEMIC ATTACK [None]
  - HYPERTENSION [None]
